FAERS Safety Report 23574646 (Version 2)
Quarter: 2024Q1

REPORT INFORMATION
  Report Type: Spontaneous
  Country: JP (occurrence: JP)
  Receive Date: 20240228
  Receipt Date: 20240321
  Transmission Date: 20240410
  Serious: Yes (Death)
  Sender: FDA-Public Use
  Company Number: JP-002147023-NVSJ2024JP002583

PATIENT
  Age: 6 Year
  Sex: Male

DRUGS (2)
  1. TAFINLAR [Suspect]
     Active Substance: DABRAFENIB MESYLATE
     Indication: Glioma
     Dosage: 150 MG
     Route: 048
     Dates: start: 20240208
  2. MEKINIST [Suspect]
     Active Substance: TRAMETINIB DIMETHYL SULFOXIDE
     Indication: Glioma
     Dosage: 1 MG
     Route: 048
     Dates: start: 20240208

REACTIONS (2)
  - Pneumonia viral [Fatal]
  - Asphyxia [Fatal]

NARRATIVE: CASE EVENT DATE: 20240211
